FAERS Safety Report 7138708-X (Version None)
Quarter: 2010Q4

REPORT INFORMATION
  Report Type: 
  Country: None (occurrence: None)
  Receive Date: 20101122
  Receipt Date: 20101106
  Transmission Date: 20110411
  Serious: Yes (Other)
  Sender: FDA-Public Use
  Company Number: IPC201011-000294

PATIENT
  Age: 71 Year
  Sex: Female

DRUGS (3)
  1. HYDROCHLOROTHIAZIDE [Suspect]
     Indication: HYPERTENSION
     Dosage: 12.5 MG ONCE A DAY, ORAL
     Route: 048
     Dates: start: 20100920, end: 20101101
  2. DILTIAZEM [Concomitant]
  3. AMBIEN [Concomitant]

REACTIONS (4)
  - ABDOMINAL DISTENSION [None]
  - DRUG INEFFECTIVE [None]
  - JOINT SWELLING [None]
  - PRODUCT FORMULATION ISSUE [None]
